FAERS Safety Report 9959507 (Version 3)
Quarter: 2014Q4

REPORT INFORMATION
  Report Type: Spontaneous
  Country: US (occurrence: None)
  Receive Date: 20140228
  Receipt Date: 20141124
  Transmission Date: 20150529
  Serious: Yes (Other)
  Sender: FDA-Public Use
  Company Number: 2014-US-001934

PATIENT
  Age: 43 Year
  Sex: Female
  Weight: 62.6 kg

DRUGS (10)
  1. XYREM [Suspect]
     Active Substance: SODIUM OXYBATE
     Indication: NARCOLEPSY
     Route: 048
     Dates: start: 201311, end: 201311
  2. METHYLPHENIDATE (METHYLPHENIDATE HYDROCHLORIDE) [Concomitant]
  3. CITALOPRAM (CITALOPRAM HYDROCHLORIDE) [Concomitant]
  4. RANITIDINE [Concomitant]
     Active Substance: RANITIDINE\RANITIDINE HYDROCHLORIDE
  5. MELOXICAM (MELOXICAM) [Concomitant]
     Active Substance: MELOXICAM
  6. PROVIGIL [Concomitant]
     Active Substance: MODAFINIL
  7. NEXIUM [Concomitant]
     Active Substance: ESOMEPRAZOLE MAGNESIUM
  8. PROAIR (FLUTICASONE PROPIONATE) [Concomitant]
     Active Substance: FLUTICASONE PROPIONATE
  9. SUCRALFATE (SUCRALFATE) UNKNOWN [Concomitant]
     Active Substance: SUCRALFATE
  10. NABUMETONE (NABUMETONE) [Concomitant]

REACTIONS (7)
  - Condition aggravated [None]
  - Walking aid user [None]
  - Road traffic accident [None]
  - Tenosynovitis stenosans [None]
  - Asthma [None]
  - Contusion [None]
  - Post-traumatic pain [None]

NARRATIVE: CASE EVENT DATE: 201312
